FAERS Safety Report 6785202-1 (Version None)
Quarter: 2010Q2

REPORT INFORMATION
  Report Type: 
  Country: None (occurrence: None)
  Receive Date: 20100622
  Receipt Date: 20100622
  Transmission Date: 20101027
  Serious: No
  Sender: FDA-Public Use
  Company Number: None

PATIENT
  Sex: Female

DRUGS (1)
  1. FORTEO [Suspect]
     Indication: OSTEOPOROSIS
     Dosage: 20MCG QD 003 (SQ)
     Route: 058
     Dates: start: 20090306, end: 20100506

REACTIONS (1)
  - BLOOD CALCIUM INCREASED [None]
